FAERS Safety Report 7767868-2 (Version None)
Quarter: 2011Q3

REPORT INFORMATION
  Report Type: 
  Country: None (occurrence: None)
  Receive Date: 20110922
  Receipt Date: 20110425
  Transmission Date: 20111222
  Serious: No
  Sender: FDA-Public Use
  Company Number: US-ASTRAZENECA-2011SE24274

PATIENT
  Age: 16 Year
  Sex: Male
  Weight: 88.5 kg

DRUGS (11)
  1. SEROQUEL XR [Suspect]
     Route: 048
  2. MULTI-VITAMIN [Concomitant]
  3. RIBOFLAVIN [Concomitant]
  4. VITAMIN D [Concomitant]
  5. LITHIUM CARBONATE [Concomitant]
  6. LEVOTHYROXINE SODIUM [Concomitant]
  7. NASONEX [Concomitant]
  8. CLONAZEPAM [Concomitant]
  9. STRATTERA [Concomitant]
  10. SINGULAIR [Concomitant]
  11. OMEPRAZOLE [Concomitant]

REACTIONS (1)
  - HAEMATOCHEZIA [None]
